FAERS Safety Report 9289365 (Version 2)
Quarter: 2013Q3

REPORT INFORMATION
  Report Type: Spontaneous
  Country: US (occurrence: US)
  Receive Date: 20130514
  Receipt Date: 20130716
  Transmission Date: 20140515
  Serious: Yes (Other)
  Sender: FDA-Public Use
  Company Number: PHEH2013US009904

PATIENT
  Sex: Female

DRUGS (3)
  1. DIOVAN [Suspect]
     Dosage: 320 MG, UNK
  2. ESTRADIOL [Suspect]
  3. PREMARIN [Suspect]

REACTIONS (3)
  - Drug withdrawal syndrome [Unknown]
  - Mass [Unknown]
  - Rash [Unknown]
